FAERS Safety Report 24631445 (Version 1)
Quarter: 2024Q4

REPORT INFORMATION
  Report Type: Spontaneous
  Country: US (occurrence: US)
  Receive Date: 20241118
  Receipt Date: 20241118
  Transmission Date: 20250114
  Serious: Yes (Other)
  Sender: Haleon PLC
  Company Number: US-009507513-1902USA002073

PATIENT
  Sex: Female
  Weight: 70.748 kg

DRUGS (9)
  1. ADVIL [Suspect]
     Active Substance: IBUPROFEN
     Indication: Product used for unknown indication
  2. ZOSTAVAX [Suspect]
     Active Substance: VARICELLA-ZOSTER VIRUS STRAIN OKA/MERCK LIVE ANTIGEN
     Indication: Routine health maintenance
     Route: 030
     Dates: start: 20100203
  3. ZOSTAVAX [Suspect]
     Active Substance: VARICELLA-ZOSTER VIRUS STRAIN OKA/MERCK LIVE ANTIGEN
     Indication: Prophylaxis
  4. CLINDAMYCIN [Suspect]
     Active Substance: CLINDAMYCIN
     Indication: Product used for unknown indication
     Dosage: UNK
  5. INFLUENZA VIRUS VACCINE [Concomitant]
     Active Substance: INFLUENZA VIRUS VACCINE
     Indication: Prophylaxis
     Dosage: UNK
     Route: 065
     Dates: start: 20100107
  6. DOXYCYCLINE [Suspect]
     Active Substance: DOXYCYCLINE
     Indication: Rosacea
     Dosage: UNK
     Dates: start: 20160414
  7. CALCIUM [Concomitant]
     Active Substance: CALCIUM
     Indication: Osteoarthritis
     Dosage: 1.5 MILLIGRAM, ONCE DAILY
     Route: 048
  8. METFORMIN HYDROCHLORIDE [Concomitant]
     Active Substance: METFORMIN HYDROCHLORIDE
     Indication: Product used for unknown indication
     Dosage: 500 MILLIGRAM, BID
     Route: 048
  9. METFORMIN HYDROCHLORIDE [Concomitant]
     Active Substance: METFORMIN HYDROCHLORIDE
     Indication: Diabetes mellitus
     Dosage: HALF TABLET TAKEN BI-WEEKLY

REACTIONS (24)
  - Cardiac fibrillation [Unknown]
  - Eczema asteatotic [Unknown]
  - Skin exfoliation [Unknown]
  - Depression [Unknown]
  - Dermatitis contact [Unknown]
  - Dermatitis [Recovering/Resolving]
  - Dermatitis [Unknown]
  - Pyrexia [Unknown]
  - Drug hypersensitivity [Unknown]
  - Cardiac disorder [Unknown]
  - Urticaria [Unknown]
  - Herpes zoster [Recovered/Resolved]
  - Eczema [Unknown]
  - Actinic keratosis [Unknown]
  - Pruritus [Unknown]
  - Seborrhoeic dermatitis [Unknown]
  - Anticoagulant therapy [Unknown]
  - Vaccination failure [Unknown]
  - Seasonal allergy [Unknown]
  - Acne [Unknown]
  - Anxiety [Unknown]
  - Rosacea [Unknown]
  - Scar [Unknown]
  - Hypothyroidism [Unknown]

NARRATIVE: CASE EVENT DATE: 20160426
